FAERS Safety Report 11447469 (Version 1)
Quarter: 2015Q3

REPORT INFORMATION
  Report Type: Spontaneous
  Country: US (occurrence: US)
  Receive Date: 20150902
  Receipt Date: 20150902
  Transmission Date: 20151125
  Serious: No
  Sender: FDA-Public Use
  Company Number: US-JNJFOC-20150805502

PATIENT
  Sex: Male
  Weight: 90.72 kg

DRUGS (1)
  1. RISPERDAL [Suspect]
     Active Substance: RISPERIDONE
     Indication: BIPOLAR DISORDER
     Route: 048
     Dates: end: 2007

REACTIONS (6)
  - Weight increased [Not Recovered/Not Resolved]
  - Chest pain [Not Recovered/Not Resolved]
  - Gynaecomastia [Unknown]
  - Adverse event [Unknown]
  - Weight loss poor [Not Recovered/Not Resolved]
  - Neck pain [Not Recovered/Not Resolved]
